FAERS Safety Report 8347602-8 (Version None)
Quarter: 2012Q2

REPORT INFORMATION
  Report Type: 
  Country: None (occurrence: None)
  Receive Date: 20120507
  Receipt Date: 20120425
  Transmission Date: 20120825
  Serious: Yes (Hospitalization)
  Sender: FDA-Public Use
  Company Number: 2012SP022096

PATIENT
  Age: 69 Year
  Sex: Male

DRUGS (4)
  1. LENALIDOMIDE [Concomitant]
  2. VORINOSTAT [Concomitant]
  3. ASPIRIN [Concomitant]
  4. DEXAMETHASONE [Suspect]
     Indication: MULTIPLE MYELOMA
     Dosage: 40 MG, QW, PO
     Route: 048

REACTIONS (6)
  - DIARRHOEA [None]
  - HAEMATEMESIS [None]
  - NAUSEA [None]
  - EPISTAXIS [None]
  - ASTHENIA [None]
  - SYNCOPE [None]
